FAERS Safety Report 9387088 (Version 1)
Quarter: 2013Q3

REPORT INFORMATION
  Report Type: Spontaneous
  Country: GB (occurrence: GB)
  Receive Date: 20130708
  Receipt Date: 20130708
  Transmission Date: 20140515
  Serious: Yes (Death, Hospitalization)
  Sender: FDA-Public Use
  Company Number: PHHY2013GB068767

PATIENT
  Age: 22 Year
  Sex: Male

DRUGS (4)
  1. AZATHIOPRINE [Suspect]
     Indication: COLITIS
     Dosage: 125 MG, UNK
  2. FLUDARABINE [Suspect]
  3. CYTARABINE [Suspect]
  4. IDARUBICIN [Suspect]

REACTIONS (9)
  - Death [Fatal]
  - Myelodysplastic syndrome [Unknown]
  - Neutropenic sepsis [Unknown]
  - Cytomegalovirus colitis [Unknown]
  - Colitis [Unknown]
  - Colitis ulcerative [Unknown]
  - Monocytosis [Unknown]
  - Neutrophilia [Unknown]
  - Disease progression [Unknown]
